FAERS Safety Report 11135955 (Version 2)
Quarter: 2016Q2

REPORT INFORMATION
  Report Type: Report from Study
  Country: US (occurrence: US)
  Receive Date: 20150526
  Receipt Date: 20160516
  Transmission Date: 20160815
  Serious: No
  Sender: FDA-Public Use
  Company Number: US-MALLINCKRODT-T201501877

PATIENT
  Sex: Male
  Weight: 137 kg

DRUGS (2)
  1. REPOSITORY CORTICOTROPIN INJECTION [Suspect]
     Active Substance: CORTICOTROPIN
     Indication: PROTEINURIA
     Dosage: 80 UNITS, 2X WEEK
     Route: 030
     Dates: start: 20150320
  2. REPOSITORY CORTICOTROPIN INJECTION [Suspect]
     Active Substance: CORTICOTROPIN
     Indication: NEPHROTIC SYNDROME

REACTIONS (7)
  - Oedema [Not Recovered/Not Resolved]
  - Anger [Unknown]
  - Fatigue [Not Recovered/Not Resolved]
  - Asthenia [Unknown]
  - Sluggishness [Not Recovered/Not Resolved]
  - Mood altered [Not Recovered/Not Resolved]
  - Oedema peripheral [Not Recovered/Not Resolved]
